FAERS Safety Report 7373327-1 (Version None)
Quarter: 2011Q1

REPORT INFORMATION
  Report Type: 
  Country: None (occurrence: None)
  Receive Date: 20110324
  Receipt Date: 20110318
  Transmission Date: 20110831
  Serious: Yes (Other)
  Sender: FDA-Public Use
  Company Number: US-RB-005639-10

PATIENT
  Sex: Female

DRUGS (5)
  1. VALIUM [Suspect]
     Route: 048
     Dates: start: 20100301, end: 20100401
  2. SUBOXONE [Suspect]
     Indication: DRUG DEPENDENCE
     Route: 060
     Dates: start: 20081001, end: 20100817
  3. VALIUM [Suspect]
     Indication: CONVULSION
     Route: 048
     Dates: end: 20100101
  4. SUBUTEX [Suspect]
     Indication: DRUG DEPENDENCE
     Route: 060
     Dates: start: 20100818
  5. VALIUM [Suspect]
     Route: 048
     Dates: start: 20100401

REACTIONS (2)
  - PREMATURE LABOUR [None]
  - DRUG EXPOSURE DURING PREGNANCY [None]
